FAERS Safety Report 8921656 (Version 3)
Quarter: 2013Q3

REPORT INFORMATION
  Report Type: Report from Study
  Country: JP (occurrence: JP)
  Receive Date: 20121121
  Receipt Date: 20130709
  Transmission Date: 20140515
  Serious: Yes (Hospitalization)
  Sender: FDA-Public Use
  Company Number: JP-009507513-1211JPN007368

PATIENT
  Age: 57 Year
  Sex: Male
  Weight: 73 kg

DRUGS (11)
  1. PEGINTRON [Suspect]
     Indication: CHRONIC HEPATITIS C
     Dosage: 100 MICROGRAM, QW
     Route: 058
     Dates: start: 20120702
  2. REBETOL [Suspect]
     Indication: CHRONIC HEPATITIS C
     Dosage: 800 MG, QD
     Route: 048
     Dates: start: 20120702, end: 20121008
  3. REBETOL [Suspect]
     Dosage: 600MG, 800MG/2 DAYS
     Route: 048
     Dates: start: 20121009
  4. TELAVIC [Suspect]
     Indication: CHRONIC HEPATITIS C
     Dosage: 2250 MG, QD
     Route: 048
     Dates: start: 20120702, end: 20120923
  5. ALCENOL [Concomitant]
     Indication: HYPERTENSION
     Dosage: 12.5 MG, QD
     Route: 048
     Dates: end: 20121020
  6. AMARYL [Concomitant]
     Indication: DIABETES MELLITUS
     Dosage: 2 MG, QD, FORMULATION: POR
     Route: 048
  7. ACTOS [Concomitant]
     Indication: DIABETES MELLITUS
     Dosage: 15 MG, QD, FORMULATION: POR
     Route: 048
     Dates: end: 20120723
  8. LOXOPROFEN SODIUM [Concomitant]
     Indication: PROPHYLAXIS
     Dosage: 60 MG, QD, PRN
     Route: 048
     Dates: start: 20120702
  9. GOODMIN [Concomitant]
     Indication: PROPHYLAXIS
     Dosage: 0.25 MG, QD, PRN
     Route: 048
     Dates: start: 20120703
  10. GOODMIN [Concomitant]
     Dosage: 0.25 MG, QD
     Route: 048
     Dates: end: 20120930
  11. [COMPOSITION UNSPECIFIED] [Concomitant]
     Indication: PROPHYLAXIS
     Dosage: 9 G, QD, FORMULATION: POR
     Route: 048

REACTIONS (7)
  - Back pain [Recovering/Resolving]
  - Pyrexia [Recovering/Resolving]
  - Chills [Recovering/Resolving]
  - Headache [Recovering/Resolving]
  - Decreased appetite [Recovered/Resolved]
  - Nausea [Recovering/Resolving]
  - Malaise [Recovering/Resolving]
